FAERS Safety Report 17431007 (Version 1)
Quarter: 2020Q1

REPORT INFORMATION
  Report Type: Spontaneous
  Country: US (occurrence: US)
  Receive Date: 20200218
  Receipt Date: 20200218
  Transmission Date: 20200409
  Serious: No
  Sender: FDA-Public Use
  Company Number: US-TEVA-2020-US-1185101

PATIENT

DRUGS (1)
  1. DICLOFENAC EPOLAMINE TEVA [Suspect]
     Active Substance: DICLOFENAC EPOLAMINE
     Dosage: PATCH
     Route: 061

REACTIONS (2)
  - Blister [Unknown]
  - Product adhesion issue [Unknown]
